FAERS Safety Report 6817360-4 (Version None)
Quarter: 2010Q3

REPORT INFORMATION
  Report Type: 
  Country: None (occurrence: None)
  Receive Date: 20100706
  Receipt Date: 20100702
  Transmission Date: 20110219
  Serious: Yes (Death)
  Sender: FDA-Public Use
  Company Number: GB-AMGEN-KDC421893

PATIENT
  Age: 69 Year
  Sex: Female

DRUGS (1)
  1. PANITUMUMAB [Suspect]
     Indication: COLORECTAL CANCER

REACTIONS (1)
  - CARDIAC ARREST [None]
